FAERS Safety Report 6601948-X (Version None)
Quarter: 2010Q1

REPORT INFORMATION
  Report Type: 
  Country: None (occurrence: None)
  Receive Date: 20100225
  Receipt Date: 20100222
  Transmission Date: 20100710
  Serious: Yes (Death)
  Sender: FDA-Public Use
  Company Number: US-JNJFOC-20100111238

PATIENT
  Sex: Male
  Weight: 100.7 kg

DRUGS (7)
  1. INVEGA SUSTENNA [Suspect]
     Indication: DRUG USE FOR UNKNOWN INDICATION
     Route: 030
  2. DEPAKOTE [Concomitant]
     Indication: SCHIZOPHRENIA
  3. LITHIUM CARBONATE [Concomitant]
     Indication: SCHIZOPHRENIA
  4. CELEXA [Concomitant]
     Indication: DEPRESSION
  5. CELEXA [Concomitant]
     Indication: ANXIETY
  6. RISPERDAL [Concomitant]
     Indication: SCHIZOPHRENIA
  7. COGENTIN [Concomitant]
     Indication: TREMOR

REACTIONS (2)
  - DEATH [None]
  - DIARRHOEA [None]
